FAERS Safety Report 18413021 (Version 2)
Quarter: 2020Q4

REPORT INFORMATION
  Report Type: Spontaneous
  Country: US (occurrence: US)
  Receive Date: 20201022
  Receipt Date: 20201022
  Transmission Date: 20210114
  Serious: Yes (Other)
  Sender: FDA-Public Use
  Company Number: US-GILEAD-2020-0497818

PATIENT
  Sex: Female

DRUGS (2)
  1. ASPIRIN [ACETYLSALICYLIC ACID] [Concomitant]
     Active Substance: ASPIRIN
  2. COMPLERA [Suspect]
     Active Substance: EMTRICITABINE\RILPIVIRINE HYDROCHLORIDE\TENOFOVIR DISOPROXIL FUMARATE
     Indication: HIV INFECTION
     Route: 065

REACTIONS (11)
  - Peripheral swelling [Unknown]
  - Cardiovascular disorder [Recovering/Resolving]
  - Neuropathy peripheral [Unknown]
  - Mental disorder [Unknown]
  - Drug interaction [Unknown]
  - Dizziness [Unknown]
  - Cardiac failure [Recovering/Resolving]
  - Weight increased [Unknown]
  - Erythema [Unknown]
  - Dyspnoea [Unknown]
  - Hyperphagia [Unknown]
